FAERS Safety Report 5162704-5 (Version None)
Quarter: 2006Q4

REPORT INFORMATION
  Report Type: 
  Country: None (occurrence: None)
  Receive Date: 20061201
  Receipt Date: 20060706
  Transmission Date: 20070319
  Serious: No
  Sender: FDA-Public Use
  Company Number: US-GLAXOSMITHKLINE-A0611318A

PATIENT
  Age: 72 Year
  Sex: Male

DRUGS (3)
  1. AUGMENTIN XR [Suspect]
     Indication: PROSTATITIS
     Dosage: 2G TWICE PER DAY
     Route: 048
     Dates: start: 20060629, end: 20060710
  2. TRUSOPT [Concomitant]
  3. LUMIGAN [Concomitant]

REACTIONS (5)
  - DIARRHOEA [None]
  - DYSPEPSIA [None]
  - ERUCTATION [None]
  - FREQUENT BOWEL MOVEMENTS [None]
  - HICCUPS [None]
